FAERS Safety Report 17984282 (Version 1)
Quarter: 2020Q3

REPORT INFORMATION
  Report Type: Spontaneous
  Country: US (occurrence: US)
  Receive Date: 20200706
  Receipt Date: 20200706
  Transmission Date: 20201103
  Serious: Yes (Other)
  Sender: FDA-Public Use
  Company Number: None

PATIENT
  Age: 58 Year
  Sex: Male
  Weight: 96.75 kg

DRUGS (1)
  1. HIZENTRA [Suspect]
     Active Substance: HUMAN IMMUNOGLOBULIN G
     Indication: SELECTIVE IGG SUBCLASS DEFICIENCY
     Dosage: ?          OTHER FREQUENCY:WEEKLY;?
     Route: 058

REACTIONS (7)
  - Peripheral swelling [None]
  - Infusion site pain [None]
  - Influenza like illness [None]
  - Pain in extremity [None]
  - Dizziness postural [None]
  - Arthralgia [None]
  - Hyperaesthesia [None]

NARRATIVE: CASE EVENT DATE: 20200628
